FAERS Safety Report 10143522 (Version 5)
Quarter: 2015Q2

REPORT INFORMATION
  Report Type: Spontaneous
  Country: US (occurrence: US)
  Receive Date: 20140430
  Receipt Date: 20150519
  Transmission Date: 20150821
  Serious: Yes (Hospitalization, Other)
  Sender: FDA-Public Use
  Company Number: US-PFIZER INC-2014115009

PATIENT
  Age: 56 Year
  Sex: Female
  Weight: 88 kg

DRUGS (22)
  1. METHOCARBAMOL. [Concomitant]
     Active Substance: METHOCARBAMOL
     Indication: NECK PAIN
     Dosage: 750 MG, 1/2-1, Q8H AS NEEDED
     Route: 048
     Dates: start: 20140415
  2. METHOCARBAMOL. [Concomitant]
     Active Substance: METHOCARBAMOL
     Indication: BACK PAIN
  3. NORCO [Concomitant]
     Active Substance: ACETAMINOPHEN\HYDROCODONE BITARTRATE
     Dosage: (HYDROCODONE BITARTRATE 7.5MG, PARACETAMOL325MG) 1 DF EVERY 12 HOURS AS NEEDED
  4. LYRICA [Suspect]
     Active Substance: PREGABALIN
     Dosage: 200 MG, 2X/DAY
     Route: 048
     Dates: start: 20150310
  5. TRAMADOL HYDROCHLORIDE. [Concomitant]
     Active Substance: TRAMADOL HYDROCHLORIDE
     Indication: FIBROMYALGIA
  6. METOPROLOL SUCCINATE. [Concomitant]
     Active Substance: METOPROLOL SUCCINATE
     Indication: HYPERTENSION
     Dosage: 50 MG, DAILY
     Route: 048
  7. AMITRIPTYLINE HCL [Concomitant]
     Active Substance: AMITRIPTYLINE
     Dosage: 20 MG, 1X/DAY
     Route: 048
  8. LOMOTIL [Concomitant]
     Active Substance: ATROPINE SULFATE\DIPHENOXYLATE HYDROCHLORIDE
     Indication: DIARRHOEA
     Dosage: (DIPHENOXYLATE 2.5-ATROPINE0.025 MG) 1 TABLET EVERY 6 HOURS AS NEEDED
  9. FLUOXETINE [Concomitant]
     Active Substance: FLUOXETINE\FLUOXETINE HYDROCHLORIDE
     Dosage: 40 MG, UNK
  10. PROZAC [Concomitant]
     Active Substance: FLUOXETINE HYDROCHLORIDE
     Dosage: 40 MG, 2X/DAY
     Route: 048
  11. EXCEDRIN [Concomitant]
     Active Substance: ACETAMINOPHEN\ASPIRIN\CAFFEINE
     Dosage: 1 DF, DAILY AS NEEDED
     Route: 048
  12. KETOROLAC TROMETHAMINE. [Concomitant]
     Active Substance: KETOROLAC TROMETHAMINE
     Indication: PAIN
     Dosage: 10 MG Q 6 HOURS PRN
     Route: 048
  13. XANAX [Concomitant]
     Active Substance: ALPRAZOLAM
     Dosage: 0.5 MG, 2X/DAY AS NEEDED
     Route: 048
  14. AMBIEN [Concomitant]
     Active Substance: ZOLPIDEM TARTRATE
     Indication: INSOMNIA
     Dosage: 10 MG, 1X/DAY BEDTIME
     Route: 048
     Dates: start: 20140422
  15. ORTHO-EST [Concomitant]
     Active Substance: ESTROPIPATE
     Dosage: 2 (0.625, 7.5 MG) DF, 1X/DAY
  16. AMITRIPTYLINE HCL [Concomitant]
     Active Substance: AMITRIPTYLINE
     Dosage: 10 MG, DAILY
     Route: 048
  17. LYRICA [Suspect]
     Active Substance: PREGABALIN
     Indication: FIBROMYALGIA
     Dosage: 100 MG, 2X/DAY
     Route: 048
     Dates: start: 20140203
  18. TRAMADOL HYDROCHLORIDE. [Concomitant]
     Active Substance: TRAMADOL HYDROCHLORIDE
     Indication: PAIN
     Dosage: 50 MG, 1-2 Q6H AS NEEDED
     Route: 048
     Dates: start: 20140304
  19. TIZANIDINE HYDROCHLORIDE. [Concomitant]
     Active Substance: TIZANIDINE HYDROCHLORIDE
     Dosage: 4 MG, DAILY
     Route: 048
  20. CLONAZEPAM. [Concomitant]
     Active Substance: CLONAZEPAM
     Dosage: 0.5 MG, 2X/DAY
     Route: 048
     Dates: start: 20140422
  21. LYRICA [Suspect]
     Active Substance: PREGABALIN
     Dosage: 150 MG, 2X/DAY
  22. METHOCARBAMOL. [Concomitant]
     Active Substance: METHOCARBAMOL
     Indication: FIBROMYALGIA

REACTIONS (40)
  - Pneumonia [Unknown]
  - Arthralgia [Not Recovered/Not Resolved]
  - Depression [Unknown]
  - Back pain [Unknown]
  - Asthenia [Unknown]
  - Sleep disorder [Unknown]
  - Pain [Unknown]
  - Myalgia [Recovering/Resolving]
  - Respiratory failure [Unknown]
  - Joint swelling [Unknown]
  - Nasal congestion [Unknown]
  - Cyst [Unknown]
  - Weight decreased [Unknown]
  - Weight increased [Unknown]
  - Hypersensitivity [Unknown]
  - Flatulence [Unknown]
  - Joint stiffness [Unknown]
  - Dry eye [Recovering/Resolving]
  - Abdominal distension [Unknown]
  - Headache [Unknown]
  - Anxiety [Unknown]
  - Diarrhoea [Not Recovered/Not Resolved]
  - Musculoskeletal pain [Unknown]
  - Hypoaesthesia [Unknown]
  - Spinal osteoarthritis [Unknown]
  - Vitamin D deficiency [Unknown]
  - Irritable bowel syndrome [Unknown]
  - Neck pain [Unknown]
  - Pain in extremity [Unknown]
  - Occipital neuralgia [Unknown]
  - Dysphagia [Unknown]
  - Dyspnoea exertional [Unknown]
  - Abdominal pain [Unknown]
  - Fatigue [Unknown]
  - Nasal ulcer [Unknown]
  - Cough [Unknown]
  - Wheezing [Unknown]
  - Dyspepsia [Unknown]
  - Paraesthesia [Unknown]
  - Nodule [Unknown]

NARRATIVE: CASE EVENT DATE: 201403
